FAERS Safety Report 14453500 (Version 1)
Quarter: 2018Q1

REPORT INFORMATION
  Report Type: Spontaneous
  Country: US (occurrence: US)
  Receive Date: 20180127
  Receipt Date: 20180127
  Transmission Date: 20180509
  Serious: Yes (Other)
  Sender: FDA-Public Use
  Company Number: None

PATIENT
  Age: 45 Year
  Sex: Male
  Weight: 103.5 kg

DRUGS (14)
  1. VITAMIN D [Concomitant]
     Active Substance: CHOLECALCIFEROL
  2. OMEGA 3 [Concomitant]
     Active Substance: OMEGA-3 FATTY ACIDS
  3. METFORMIN [Concomitant]
     Active Substance: METFORMIN HYDROCHLORIDE
  4. ULORIC [Concomitant]
     Active Substance: FEBUXOSTAT
  5. TRULICITY [Suspect]
     Active Substance: DULAGLUTIDE
     Indication: TYPE 2 DIABETES MELLITUS
     Dosage: ?          QUANTITY:.5 ML;OTHER FREQUENCY:ONCE A WEEK;?
     Route: 058
     Dates: start: 20151001, end: 20171015
  6. VITAMIN C [Concomitant]
     Active Substance: ASCORBIC ACID
  7. LABATELOL [Concomitant]
  8. CLARITIN [Concomitant]
     Active Substance: LORATADINE
  9. TART CHERRY PILLS [Concomitant]
  10. PEPCID [Concomitant]
     Active Substance: FAMOTIDINE
  11. VIT B COMPLEX [Concomitant]
  12. LOSARTAN. [Concomitant]
     Active Substance: LOSARTAN
  13. FLAXSEED OLL [Concomitant]
  14. ASPIRIN. [Concomitant]
     Active Substance: ASPIRIN

REACTIONS (1)
  - Pancreatitis [None]

NARRATIVE: CASE EVENT DATE: 20171023
